FAERS Safety Report 4359097-X (Version None)
Quarter: 2004Q2

REPORT INFORMATION
  Report Type: 
  Country: None (occurrence: None)
  Receive Date: 20040517
  Receipt Date: 20040517
  Transmission Date: 20050107
  Serious: Yes (Other)
  Sender: FDA-Public Use
  Company Number: None

PATIENT
  Age: 65 Year
  Sex: Female
  Weight: 72.5755 kg

DRUGS (1)
  1. DURAGESIC [Suspect]
     Indication: ANALGESIC EFFECT

REACTIONS (4)
  - DIZZINESS [None]
  - HALLUCINATION [None]
  - NIGHTMARE [None]
  - TREMOR [None]
